FAERS Safety Report 9425310 (Version 1)
Quarter: 2013Q3

REPORT INFORMATION
  Report Type: Spontaneous
  Country: GB (occurrence: GB)
  Receive Date: 20130729
  Receipt Date: 20130729
  Transmission Date: 20140515
  Serious: Yes (Other)
  Sender: FDA-Public Use
  Company Number: PHHY2013GB077618

PATIENT
  Age: 36 Year
  Sex: Female

DRUGS (7)
  1. PREGABALIN [Suspect]
     Indication: PAIN IN EXTREMITY
     Dosage: 300 MG, BID
     Route: 048
  2. DIAZEPAM [Suspect]
     Dosage: 10 MG, TID
     Route: 048
  3. DIAZEPAM [Suspect]
     Dosage: 10 MG, BID 10MG TDS INITIALLY, NOW REDUCED
     Route: 048
  4. OLANZAPINE [Suspect]
     Indication: SCHIZOPHRENIA
     Dosage: 15 MG, QD
  5. SUBUTEX [Suspect]
     Indication: SUBSTANCE ABUSE
     Dosage: 14 MG, QD
     Route: 060
  6. ZOPICLONE [Suspect]
     Dosage: 15 MG, QD
     Route: 048
  7. OMEPRAZOLE [Suspect]
     Dosage: 30 MG, UNK
     Route: 048

REACTIONS (2)
  - Drug abuse [Unknown]
  - Exposure during pregnancy [Unknown]
